FAERS Safety Report 22521959 (Version 4)
Quarter: 2025Q1

REPORT INFORMATION
  Report Type: Report from Study
  Country: US (occurrence: US)
  Receive Date: 20230605
  Receipt Date: 20250304
  Transmission Date: 20250409
  Serious: Yes (Death, Life-Threatening, Hospitalization, Other)
  Sender: NOVARTIS
  Company Number: US-002147023-NVSC2022US246219

PATIENT
  Age: 68 Year
  Sex: Female
  Weight: 63.4 kg

DRUGS (28)
  1. LUTATHERA [Suspect]
     Active Substance: LUTETIUM OXODOTREOTIDE LU-177
     Indication: Gastroenteropancreatic neuroendocrine tumour disease
     Route: 042
     Dates: start: 20180726
  2. LUTATHERA [Suspect]
     Active Substance: LUTETIUM OXODOTREOTIDE LU-177
     Route: 042
     Dates: start: 20180920
  3. LUTATHERA [Suspect]
     Active Substance: LUTETIUM OXODOTREOTIDE LU-177
     Route: 042
     Dates: start: 20181116
  4. LUTATHERA [Suspect]
     Active Substance: LUTETIUM OXODOTREOTIDE LU-177
     Route: 042
     Dates: start: 20190111
  5. XANAX [Concomitant]
     Active Substance: ALPRAZOLAM
     Indication: Product used for unknown indication
     Route: 048
     Dates: start: 20200206, end: 2021
  6. TYLENOL [Concomitant]
     Active Substance: ACETAMINOPHEN
     Indication: Product used for unknown indication
     Dosage: 650 MG, Q6H (PRN)
     Route: 048
     Dates: start: 20210628
  7. TYLENOL [Concomitant]
     Active Substance: ACETAMINOPHEN
     Route: 065
     Dates: start: 20210730
  8. TYLENOL [Concomitant]
     Active Substance: ACETAMINOPHEN
     Route: 065
     Dates: start: 20210802, end: 2021
  9. SODIUM CHLORIDE [Concomitant]
     Active Substance: SODIUM CHLORIDE
     Indication: Product used for unknown indication
     Dosage: 5-80 ML, Q8H
     Route: 042
     Dates: start: 20210628, end: 20210628
  10. ALPRAZOLAM [Concomitant]
     Active Substance: ALPRAZOLAM
     Indication: Diarrhoea
     Dosage: 1 DOSAGE FORM, QD (PRN, 3 REFILLS)
     Route: 048
     Dates: start: 20200206, end: 2021
  11. ALPRAZOLAM [Concomitant]
     Active Substance: ALPRAZOLAM
     Indication: Anxiety
  12. FOSAPREPITANT [Concomitant]
     Active Substance: FOSAPREPITANT
     Indication: Prophylaxis
     Route: 042
     Dates: start: 20180726, end: 20180726
  13. LORAZEPAM [Concomitant]
     Active Substance: LORAZEPAM
     Indication: Prophylaxis
     Route: 048
     Dates: start: 20180726, end: 20180726
  14. METOCLOPRAMIDE [Concomitant]
     Active Substance: METOCLOPRAMIDE
     Indication: Nausea
     Route: 048
     Dates: start: 20180726, end: 20180726
  15. ONDANSETRON [Concomitant]
     Active Substance: ONDANSETRON
     Indication: Nausea
     Route: 042
     Dates: start: 20180726, end: 20180726
  16. ONDANSETRON [Concomitant]
     Active Substance: ONDANSETRON
     Route: 048
     Dates: start: 20180726, end: 20180802
  17. AUGMENTIN [Concomitant]
     Active Substance: AMOXICILLIN\CLAVULANATE POTASSIUM
     Indication: Tooth infection
     Route: 048
     Dates: start: 20210702, end: 202107
  18. HYDROCODONE [Concomitant]
     Active Substance: HYDROCODONE
     Indication: Toothache
     Route: 048
     Dates: start: 20210702, end: 202107
  19. BUPIVACAINE\EPINEPHRINE [Concomitant]
     Active Substance: BUPIVACAINE\EPINEPHRINE
     Indication: Toothache
     Route: 050
     Dates: start: 20210702, end: 20210702
  20. BENADRYL [Concomitant]
     Active Substance: DIPHENHYDRAMINE HYDROCHLORIDE
     Indication: Oedema peripheral
     Route: 048
     Dates: start: 20210724, end: 2021
  21. VICODIN [Concomitant]
     Active Substance: ACETAMINOPHEN\HYDROCODONE BITARTRATE
     Indication: Pain in extremity
     Route: 048
     Dates: start: 20210724, end: 2021
  22. OXYCODONE [Concomitant]
     Active Substance: OXYCODONE
     Indication: Pain in extremity
     Route: 048
     Dates: start: 20210727, end: 20210727
  23. KEFLEX [Concomitant]
     Active Substance: CEPHALEXIN
     Indication: Oedema peripheral
     Route: 048
     Dates: start: 20210727, end: 20210805
  24. FUROSEMIDE [Concomitant]
     Active Substance: FUROSEMIDE
     Indication: Oedema peripheral
     Route: 048
     Dates: start: 20210730, end: 20210730
  25. LACTATED RINGERS SOLUTION [Concomitant]
     Active Substance: CALCIUM CHLORIDE\POTASSIUM CHLORIDE\SODIUM CHLORIDE\SODIUM LACTATE
     Indication: Blood creatinine increased
     Route: 042
     Dates: start: 20210730, end: 20210730
  26. SENNA [Concomitant]
     Active Substance: SENNOSIDES
     Indication: Constipation
     Route: 048
     Dates: start: 20210730, end: 20210802
  27. POLYETHYLENE GLYCOL [Concomitant]
     Active Substance: POLYETHYLENE GLYCOL
     Indication: Constipation
     Route: 048
     Dates: start: 20210731, end: 20210802
  28. ACETAMINOPHEN [Concomitant]
     Active Substance: ACETAMINOPHEN
     Indication: Pyrexia
     Route: 048
     Dates: start: 20210829, end: 20210829

REACTIONS (18)
  - Myelodysplastic syndrome [Fatal]
  - Second primary malignancy [Fatal]
  - Anaemia [Not Recovered/Not Resolved]
  - Dizziness [Unknown]
  - Fatigue [Recovered/Resolved with Sequelae]
  - Asthenia [Unknown]
  - Haemoglobin decreased [Unknown]
  - White blood cell count decreased [Unknown]
  - Red blood cell count decreased [Unknown]
  - Platelet count decreased [Recovered/Resolved with Sequelae]
  - Contusion [Unknown]
  - Vitamin B12 deficiency [Not Recovered/Not Resolved]
  - Pancytopenia [Unknown]
  - Paraesthesia [Unknown]
  - Melaena [Recovered/Resolved]
  - Muscular weakness [Unknown]
  - Pain [Unknown]
  - Diarrhoea [Unknown]

NARRATIVE: CASE EVENT DATE: 20200601
